FAERS Safety Report 24166618 (Version 1)
Quarter: 2024Q3

REPORT INFORMATION
  Report Type: Spontaneous
  Country: FR (occurrence: FR)
  Receive Date: 20240802
  Receipt Date: 20240802
  Transmission Date: 20241017
  Serious: Yes (Hospitalization)
  Sender: RANBAXY
  Company Number: FR-AFSSAPS-AM2024000391

PATIENT
  Age: 77 Year
  Sex: Male
  Weight: 80 kg

DRUGS (3)
  1. ATORVASTATIN [Suspect]
     Active Substance: ATORVASTATIN
     Indication: Blood cholesterol
     Dosage: 1 DOSAGE FORM, DAILY
     Route: 048
     Dates: start: 20240312
  2. TRIPTORELIN [Suspect]
     Active Substance: TRIPTORELIN
     Indication: Blood cholesterol
     Dosage: 1 DOSAGE FORM, 3 MONTHLY
     Route: 048
     Dates: start: 20231230, end: 20231230
  3. RAMIPRIL [Concomitant]
     Active Substance: RAMIPRIL
     Indication: Product used for unknown indication
     Dosage: UNK
     Route: 065

REACTIONS (2)
  - Hepatic cytolysis [Recovering/Resolving]
  - Cholestasis [Recovering/Resolving]

NARRATIVE: CASE EVENT DATE: 20240401
